FAERS Safety Report 22399942 (Version 1)
Quarter: 2023Q2

REPORT INFORMATION
  Report Type: Spontaneous
  Country: US (occurrence: US)
  Receive Date: 20230602
  Receipt Date: 20230602
  Transmission Date: 20230722
  Serious: Yes (Hospitalization, Other)
  Sender: FDA-Public Use
  Company Number: US-drreddys-LIT/USA/23/0166277

PATIENT
  Sex: Male

DRUGS (6)
  1. ABIRATERONE ACETATE [Interacting]
     Active Substance: ABIRATERONE ACETATE
     Indication: Hormone-refractory prostate cancer
  2. DOCETAXEL [Suspect]
     Active Substance: DOCETAXEL
     Indication: Hormone-refractory prostate cancer
     Dosage: 8 CYCLES
  3. PREDNISONE [Suspect]
     Active Substance: PREDNISONE
     Indication: Hormone-refractory prostate cancer
  4. SPIRONOLACTONE [Interacting]
     Active Substance: SPIRONOLACTONE
     Indication: Primary hyperaldosteronism
  5. SPIRONOLACTONE [Interacting]
     Active Substance: SPIRONOLACTONE
     Dosage: INCREASED THE DOSE FROM 50 MG TO 200 MG
  6. LEUPROLIDE ACETATE [Concomitant]
     Active Substance: LEUPROLIDE ACETATE
     Indication: Androgen therapy

REACTIONS (6)
  - Hormone-refractory prostate cancer [Unknown]
  - Neoplasm progression [Unknown]
  - Adrenal adenoma [Unknown]
  - Drug ineffective [Unknown]
  - Primary hyperaldosteronism [Recovering/Resolving]
  - Drug interaction [Unknown]
